FAERS Safety Report 4345594-X (Version None)
Quarter: 2004Q2

REPORT INFORMATION
  Report Type: 
  Country: None (occurrence: None)
  Receive Date: 20040421
  Receipt Date: 20040409
  Transmission Date: 20050107
  Serious: Yes (Hospitalization)
  Sender: FDA-Public Use
  Company Number: US-JNJFOC-20040403744

PATIENT
  Age: 70 Year
  Sex: Male
  Weight: 82.5547 kg

DRUGS (10)
  1. REMICADE [Suspect]
     Indication: RHEUMATOID ARTHRITIS
     Dosage: SEE IMAGE
     Route: 042
     Dates: start: 20030815
  2. REMICADE [Suspect]
     Indication: RHEUMATOID ARTHRITIS
     Dosage: SEE IMAGE
     Route: 042
     Dates: start: 20030829
  3. REMICADE [Suspect]
     Indication: RHEUMATOID ARTHRITIS
     Dosage: SEE IMAGE
     Route: 042
     Dates: start: 20040217
  4. REMICADE [Suspect]
  5. METHOTREXATE [Concomitant]
  6. COZAAR [Concomitant]
  7. LIPITOR [Concomitant]
  8. METOPROLOL (METOPROLOL) [Concomitant]
  9. AMIODARONE HCL [Concomitant]
  10. COUMADIN [Concomitant]

REACTIONS (8)
  - ASTHENIA [None]
  - COLD SWEAT [None]
  - DIZZINESS [None]
  - NIGHT SWEATS [None]
  - PAIN [None]
  - PYREXIA [None]
  - RED BLOOD CELL SEDIMENTATION RATE INCREASED [None]
  - WHITE BLOOD CELL COUNT INCREASED [None]
